FAERS Safety Report 12543494 (Version 1)
Quarter: 2016Q3

REPORT INFORMATION
  Report Type: Spontaneous
  Country: US (occurrence: None)
  Receive Date: 20160708
  Receipt Date: 20160708
  Transmission Date: 20161109
  Serious: Yes (Hospitalization)
  Sender: FDA-Public Use
  Company Number: None

PATIENT
  Age: 18 Year
  Sex: Male
  Weight: 82.56 kg

DRUGS (10)
  1. LITHIUM. [Concomitant]
     Active Substance: LITHIUM
  2. INVEGA [Concomitant]
     Active Substance: PALIPERIDONE
  3. LATUDA [Suspect]
     Active Substance: LURASIDONE HYDROCHLORIDE
     Indication: AFFECTIVE DISORDER
     Dosage: 30 TABLET(S) 40MG AM 80MG PM TAKEN BY MOUTH
     Route: 048
     Dates: start: 20151001, end: 20160706
  4. LATUDA [Suspect]
     Active Substance: LURASIDONE HYDROCHLORIDE
  5. PRILOSEC [Concomitant]
     Active Substance: OMEPRAZOLE MAGNESIUM
  6. FOLIC ACID. [Concomitant]
     Active Substance: FOLIC ACID
  7. MELATONIN [Concomitant]
     Active Substance: MELATONIN
  8. PRISTIQ EXTENDED-RELEASE [Concomitant]
     Active Substance: DESVENLAFAXINE SUCCINATE
  9. INTUNIV [Concomitant]
     Active Substance: GUANFACINE HYDROCHLORIDE
  10. VITAMIN D [Concomitant]
     Active Substance: CHOLECALCIFEROL

REACTIONS (3)
  - Pyelonephritis [None]
  - Sepsis [None]
  - Type 2 diabetes mellitus [None]

NARRATIVE: CASE EVENT DATE: 20160622
